FAERS Safety Report 8495251-3 (Version None)
Quarter: 2012Q3

REPORT INFORMATION
  Report Type: 
  Country: None (occurrence: None)
  Receive Date: 20120709
  Receipt Date: 20120702
  Transmission Date: 20120928
  Serious: Yes (Hospitalization)
  Sender: FDA-Public Use
  Company Number: US-BAYER-2012-021921

PATIENT
  Age: 21 Year
  Sex: Female
  Weight: 48.98 kg

DRUGS (12)
  1. YAZ [Suspect]
     Indication: DYSMENORRHOEA
     Dosage: UNK
     Dates: start: 20090427, end: 20090601
  2. VICODIN [Concomitant]
  3. PROMETAZIN [Concomitant]
  4. YAZ [Suspect]
     Dosage: UNK
     Dates: start: 20090701, end: 20090901
  5. LIDOCAINE HCL VISCOUS [Concomitant]
  6. ACETAMINOPHEN [Concomitant]
  7. GI COCKTAIL WITH DONNATAL [Concomitant]
  8. PEPCID [Concomitant]
  9. PERCOCET [Concomitant]
  10. DOCUSATE SODIUM [Concomitant]
  11. YAZ [Suspect]
     Indication: CONTRACEPTION
     Dosage: UNK
     Dates: start: 20081113
  12. MYLANTA [Concomitant]

REACTIONS (7)
  - VOMITING [None]
  - GALLBLADDER DISORDER [None]
  - ABDOMINAL PAIN [None]
  - PAIN [None]
  - NAUSEA [None]
  - CHOLECYSTITIS CHRONIC [None]
  - INJURY [None]
